FAERS Safety Report 16182626 (Version 2)
Quarter: 2020Q4

REPORT INFORMATION
  Report Type: Spontaneous
  Country: PR (occurrence: US)
  Receive Date: 20190411
  Receipt Date: 20201027
  Transmission Date: 20210113
  Serious: Yes (Hospitalization, Other)
  Sender: FDA-Public Use
  Company Number: PR-JNJFOC-20190343756

PATIENT
  Age: 5 Decade
  Sex: Female

DRUGS (2)
  1. XARELTO [Suspect]
     Active Substance: RIVAROXABAN
     Indication: PROTEIN S DEFICIENCY
     Route: 048
  2. XARELTO [Suspect]
     Active Substance: RIVAROXABAN
     Indication: EMBOLISM VENOUS

REACTIONS (2)
  - Haemorrhage [Unknown]
  - Haemorrhagic ovarian cyst [Recovering/Resolving]

NARRATIVE: CASE EVENT DATE: 201807
